FAERS Safety Report 16688770 (Version 1)
Quarter: 2019Q3

REPORT INFORMATION
  Report Type: Report from Study
  Country: None (occurrence: US)
  Receive Date: 20190809
  Receipt Date: 20190809
  Transmission Date: 20191004
  Serious: Yes (Other)
  Sender: FDA-Public Use
  Company Number: US-ABBVIE-19K-163-2879392-00

PATIENT
  Sex: Female

DRUGS (1)
  1. SYNTHROID [Suspect]
     Active Substance: LEVOTHYROXINE SODIUM
     Indication: PRODUCT USED FOR UNKNOWN INDICATION
     Route: 048

REACTIONS (8)
  - Disturbance in attention [Unknown]
  - Hypothyroidism [Unknown]
  - Bone loss [Unknown]
  - Feeling abnormal [Unknown]
  - Fracture [Unknown]
  - Swelling [Unknown]
  - Mental impairment [Unknown]
  - Insomnia [Unknown]
